FAERS Safety Report 5409807-5 (Version None)
Quarter: 2007Q3

REPORT INFORMATION
  Report Type: 
  Country: None (occurrence: None)
  Receive Date: 20070809
  Receipt Date: 20070730
  Transmission Date: 20080115
  Serious: Yes (Other)
  Sender: FDA-Public Use
  Company Number: JP-MERCK-0707USA00394

PATIENT
  Age: 82 Year
  Sex: Male
  Weight: 43 kg

DRUGS (11)
  1. HYZAAR [Suspect]
     Indication: HYPERTENSION
     Route: 048
     Dates: start: 20070614, end: 20070620
  2. NAFTOPIDIL [Concomitant]
     Indication: DYSURIA
     Route: 048
     Dates: start: 20070417, end: 20070620
  3. AZELNIDIPINE [Suspect]
     Indication: HYPERTENSION
     Route: 048
     Dates: start: 20070614, end: 20070620
  4. ETHYL ICOSAPENTATE [Concomitant]
     Indication: ARTERIOSCLEROSIS OBLITERANS
     Route: 065
     Dates: start: 20070614, end: 20070620
  5. LANSOPRAZOLE [Concomitant]
     Indication: REFLUX OESOPHAGITIS
     Route: 048
     Dates: start: 20070614, end: 20070620
  6. ECABET SODIUM [Concomitant]
     Indication: GASTRITIS
     Route: 048
     Dates: start: 20070614, end: 20070620
  7. PEPCID [Concomitant]
     Route: 065
  8. NIFEDIPINE [Concomitant]
     Route: 048
  9. NICERGOLINE [Concomitant]
     Route: 048
  10. COZAAR [Concomitant]
     Route: 048
  11. CHLORMADINONE ACETATE [Concomitant]
     Route: 048

REACTIONS (1)
  - TOXIC SKIN ERUPTION [None]
